FAERS Safety Report 8061789-6 (Version None)
Quarter: 2012Q1

REPORT INFORMATION
  Report Type: 
  Country: None (occurrence: None)
  Receive Date: 20120123
  Receipt Date: 20120110
  Transmission Date: 20120608
  Serious: Yes (Other)
  Sender: FDA-Public Use
  Company Number: PL-ACCORD-011340

PATIENT
  Age: 1 Year
  Sex: Female

DRUGS (3)
  1. TACROLIMUS [Suspect]
     Indication: IMMUNOSUPPRESSION
  2. MYCOPHENOLATE MOFETIL [Suspect]
     Indication: IMMUNOSUPPRESSION
  3. PREDNISONE [Concomitant]
     Indication: IMMUNOSUPPRESSION
     Dosage: INCREASED DOSE UPTO 1MG/KG/DAY WAS SLOWLY REDUCED TO 0.2MG/KG  /DAY, SUSTAINED FOR 2YR + THEN DISC

REACTIONS (2)
  - BONE MARROW FAILURE [None]
  - THROMBOTIC MICROANGIOPATHY [None]
